FAERS Safety Report 9938217 (Version 1)
Quarter: 2014Q1

REPORT INFORMATION
  Report Type: Report from Study
  Country: US (occurrence: US)
  Receive Date: 20140303
  Receipt Date: 20140303
  Transmission Date: 20141002
  Serious: No
  Sender: FDA-Public Use
  Company Number: US-ABBVIE-13P-163-1030542-00

PATIENT
  Age: 50 Year
  Sex: Female
  Weight: 72.64 kg

DRUGS (6)
  1. HUMIRA [Suspect]
     Indication: CROHN^S DISEASE
     Dates: start: 201205
  2. COLACE [Concomitant]
     Indication: CROHN^S DISEASE
  3. MULTIVITAMIN [Concomitant]
     Indication: VITAMIN SUPPLEMENTATION
  4. PANTOPRO [Concomitant]
     Indication: CROHN^S DISEASE
  5. PENTASA [Concomitant]
     Indication: CROHN^S DISEASE
  6. PROBIOTICS [Concomitant]
     Indication: GASTROINTESTINAL DISORDER

REACTIONS (1)
  - Urinary tract infection [Recovered/Resolved]
